FAERS Safety Report 15535033 (Version 2)
Quarter: 2019Q1

REPORT INFORMATION
  Report Type: Spontaneous
  Country: US (occurrence: US)
  Receive Date: 20181022
  Receipt Date: 20190103
  Transmission Date: 20190417
  Serious: No
  Sender: FDA-Public Use
  Company Number: US-AMGEN INC.-USASP2018146245

PATIENT

DRUGS (2)
  1. AIMOVIG [Suspect]
     Active Substance: ERENUMAB-AOOE
     Indication: MIGRAINE
     Dosage: UNK
     Route: 065
     Dates: start: 2018
  2. BOTOX [Concomitant]
     Active Substance: ONABOTULINUMTOXINA
     Indication: MIGRAINE
     Dosage: UNK
     Dates: start: 2016

REACTIONS (2)
  - Drug ineffective [Unknown]
  - Migraine [Not Recovered/Not Resolved]

NARRATIVE: CASE EVENT DATE: 2018
